FAERS Safety Report 23581132 (Version 7)
Quarter: 2024Q2

REPORT INFORMATION
  Report Type: Spontaneous
  Country: US (occurrence: US)
  Receive Date: 20240229
  Receipt Date: 20240521
  Transmission Date: 20240716
  Serious: No
  Sender: FDA-Public Use
  Company Number: US-PFIZER INC-PV202400027949

PATIENT
  Age: 64 Year
  Sex: Female

DRUGS (1)
  1. IBRANCE [Suspect]
     Active Substance: PALBOCICLIB
     Dosage: 125 MG

REACTIONS (8)
  - Nausea [Unknown]
  - Asthenia [Unknown]
  - White blood cell count decreased [Unknown]
  - Headache [Unknown]
  - Hypoaesthesia [Unknown]
  - Fatigue [Unknown]
  - Product dose omission issue [Unknown]
  - Dizziness [Unknown]
